FAERS Safety Report 6208176-0 (Version None)
Quarter: 2009Q2

REPORT INFORMATION
  Report Type: 
  Country: None (occurrence: None)
  Receive Date: 20090529
  Receipt Date: 20090525
  Transmission Date: 20091009
  Serious: Yes (Hospitalization)
  Sender: FDA-Public Use
  Company Number: FR-BRISTOL-MYERS SQUIBB COMPANY-14529051

PATIENT
  Age: 65 Year
  Sex: Female

DRUGS (9)
  1. SINEMET [Suspect]
     Indication: PARKINSON'S DISEASE
     Dosage: TOOK BOTH SINEMET TABS 25MG/250MG + SINEMET TABS 100 MG/10 MG  1DF=1/2 TAB OF BOTH FORMULATION
  2. SINEMET [Suspect]
  3. LEPONEX [Suspect]
     Indication: PSYCHOTIC DISORDER
     Route: 048
  4. LYRICA [Suspect]
     Indication: PSYCHOTIC DISORDER
     Route: 048
  5. SIFROL [Suspect]
     Indication: PSYCHOTIC DISORDER
     Route: 048
  6. CITALOPRAM HYDROBROMIDE [Suspect]
     Indication: PSYCHOTIC DISORDER
     Route: 048
  7. SERESTA [Suspect]
     Indication: PSYCHOTIC DISORDER
     Route: 048
  8. COMTAN [Suspect]
     Indication: PSYCHOTIC DISORDER
     Dosage: COMTAN 200MG
     Route: 048
  9. ALPRAZOLAM [Suspect]
     Indication: PSYCHOTIC DISORDER
     Route: 048

REACTIONS (1)
  - PULMONARY EMBOLISM [None]
